FAERS Safety Report 4934279-4 (Version None)
Quarter: 2006Q1

REPORT INFORMATION
  Report Type: 
  Country: None (occurrence: None)
  Receive Date: 20060307
  Receipt Date: 20060223
  Transmission Date: 20060701
  Serious: Yes (Life-Threatening)
  Sender: FDA-Public Use
  Company Number: JP-ROCHE-438201

PATIENT
  Age: 90 Year
  Sex: Female

DRUGS (5)
  1. TAMIFLU [Suspect]
     Indication: INFLUENZA
     Route: 048
     Dates: start: 20060215, end: 20060217
  2. CLARITHROMYCIN [Concomitant]
     Route: 048
  3. LOXONIN [Concomitant]
     Dosage: ORAL FORMULATION (NOT OTHERWISE SPECIFIED)
     Route: 048
  4. MUCOSTA [Concomitant]
     Dosage: ORAL FORMULATION (NOT OTHERWISE SPECIFIED)
     Route: 048
  5. CELTECT [Concomitant]
     Dosage: ORAL FORMULATION (NOT OTHERWISE SPECIFIED)
     Route: 048

REACTIONS (5)
  - ABNORMAL BEHAVIOUR [None]
  - CONTUSION [None]
  - EXCORIATION [None]
  - HALLUCINATION [None]
  - JOINT SPRAIN [None]
